FAERS Safety Report 6692546-0 (Version None)
Quarter: 2010Q2

REPORT INFORMATION
  Report Type: 
  Country: None (occurrence: None)
  Receive Date: 20100416
  Receipt Date: 20100402
  Transmission Date: 20101027
  Serious: Yes (Death, Other)
  Sender: FDA-Public Use
  Company Number: 2008002698

PATIENT
  Age: 62 Year
  Sex: Male
  Weight: 62.65 kg

DRUGS (12)
  1. ERLOTINIB (ERLOTINIB) (TABLET) (ERLOTINIB) [Suspect]
     Indication: LUNG ADENOCARCINOMA
     Dosage: 150 MG, QD), ORAL
     Route: 048
     Dates: start: 20080507, end: 20080603
  2. ZOLPIDEM TARTRATE [Concomitant]
  3. VALPROATE SODIUM [Concomitant]
  4. GASMOTIN (MOSAPRIDE CITRATE) [Concomitant]
  5. METHYCOBAL (MECOBALAMIN) [Concomitant]
  6. CYTOTEC [Concomitant]
  7. OXYCONTIN [Concomitant]
  8. NAIXAN (NAPROXEN SODIUM) [Concomitant]
  9. GASTROM (ECABET MONOSODIUM) [Concomitant]
  10. ZONISAMIDE [Concomitant]
  11. ZOMETA [Concomitant]
  12. FENTANYL-100 [Concomitant]

REACTIONS (11)
  - ANAEMIA [None]
  - DELIRIUM [None]
  - DEPRESSION [None]
  - DIARRHOEA [None]
  - DISSEMINATED INTRAVASCULAR COAGULATION [None]
  - HEPATIC FUNCTION ABNORMAL [None]
  - INTERSTITIAL LUNG DISEASE [None]
  - LUNG ADENOCARCINOMA [None]
  - MALIGNANT NEOPLASM PROGRESSION [None]
  - RASH [None]
  - RESTLESSNESS [None]
